FAERS Safety Report 4820638-7 (Version None)
Quarter: 2005Q4

REPORT INFORMATION
  Report Type: 
  Country: None (occurrence: None)
  Receive Date: 20051104
  Receipt Date: 20051031
  Transmission Date: 20060501
  Serious: Yes (Other)
  Sender: FDA-Public Use
  Company Number: NL-GLAXOSMITHKLINE-B0399196A

PATIENT
  Age: 71 Year
  Sex: Male

DRUGS (2)
  1. ZELITREX [Suspect]
     Indication: HERPES SIMPLEX
     Dosage: 500MG PER DAY
     Dates: start: 20050915, end: 20050925
  2. NO CONCURRENT MEDICATION [Concomitant]

REACTIONS (4)
  - DERMATITIS BULLOUS [None]
  - HEADACHE [None]
  - RASH PAPULAR [None]
  - URTICARIA [None]
